FAERS Safety Report 18012789 (Version 1)
Quarter: 2020Q3

REPORT INFORMATION
  Report Type: Report from Study
  Country: US (occurrence: US)
  Receive Date: 20200713
  Receipt Date: 20200713
  Transmission Date: 20201103
  Serious: Yes (Other)
  Sender: FDA-Public Use
  Company Number: US-GLAXOSMITHKLINE-US2020AMR069769

PATIENT
  Age: 81 Year
  Sex: Female

DRUGS (2)
  1. NIRAPARIB [Suspect]
     Active Substance: NIRAPARIB
     Dosage: 300 MG, QD
     Dates: end: 20200702
  2. NIRAPARIB [Suspect]
     Active Substance: NIRAPARIB
     Indication: MALIGNANT PERITONEAL NEOPLASM
     Dosage: 300 MG, DAILY
     Dates: start: 20200414

REACTIONS (12)
  - Platelet count decreased [Unknown]
  - Back pain [Unknown]
  - Syncope [Unknown]
  - Dehydration [Unknown]
  - Carbohydrate antigen 125 increased [Recovering/Resolving]
  - Product dose omission issue [Unknown]
  - Blood pressure increased [Recovering/Resolving]
  - Insomnia [Recovered/Resolved]
  - Fall [Unknown]
  - Hypertension [Recovering/Resolving]
  - Haemoglobin decreased [Recovering/Resolving]
  - Fatigue [Unknown]
